APPROVED DRUG PRODUCT: STILPHOSTROL
Active Ingredient: DIETHYLSTILBESTROL DIPHOSPHATE
Strength: 250MG/5ML
Dosage Form/Route: INJECTABLE;INJECTION
Application: N010010 | Product #001
Applicant: BAYER PHARMACEUTICALS CORP
Approved: Approved Prior to Jan 1, 1982 | RLD: No | RS: No | Type: DISCN